FAERS Safety Report 6450705-6 (Version None)
Quarter: 2009Q4

REPORT INFORMATION
  Report Type: 
  Country: None (occurrence: None)
  Receive Date: 20091120
  Receipt Date: 20091120
  Transmission Date: 20100525
  Serious: No
  Sender: FDA-Public Use
  Company Number: None

PATIENT
  Age: 60 Year
  Sex: Female
  Weight: 61.6892 kg

DRUGS (2)
  1. CIPROFLOXACIN [Suspect]
     Indication: URINARY TRACT INFECTION
     Dosage: 14 2 TIMES PER DAY PO
     Route: 048
     Dates: start: 20091027, end: 20091103
  2. CIPROFLOXACIN [Suspect]
     Indication: URINARY TRACT INFECTION
     Dosage: 14 2 TIMES PER DAY PO
     Route: 048

REACTIONS (4)
  - FEELING ABNORMAL [None]
  - PARAESTHESIA [None]
  - SENSORY DISTURBANCE [None]
  - TENDON DISORDER [None]
